FAERS Safety Report 7921193-5 (Version None)
Quarter: 2011Q4

REPORT INFORMATION
  Report Type: 
  Country: None (occurrence: None)
  Receive Date: 20111117
  Receipt Date: 20111107
  Transmission Date: 20120403
  Serious: Yes (Other)
  Sender: FDA-Public Use
  Company Number: US-BAYER-2011-053863

PATIENT
  Age: 38 Year
  Sex: Female
  Weight: 65.76 kg

DRUGS (2)
  1. ORTHO TRI-CYCLEN [Concomitant]
  2. YAZ [Suspect]
     Route: 048

REACTIONS (3)
  - PAIN [None]
  - INJURY [None]
  - DEEP VEIN THROMBOSIS [None]
